FAERS Safety Report 17543261 (Version 1)
Quarter: 2020Q1

REPORT INFORMATION
  Report Type: Spontaneous
  Country: CN (occurrence: CN)
  Receive Date: 20200316
  Receipt Date: 20200316
  Transmission Date: 20200409
  Serious: Yes (Hospitalization)
  Sender: FDA-Public Use
  Company Number: CN-009507513-2003CHN003863

PATIENT
  Age: 52 Year
  Sex: Male

DRUGS (6)
  1. AVELOX [Suspect]
     Active Substance: MOXIFLOXACIN HYDROCHLORIDE
     Indication: PNEUMONIA
     Dosage: ONE BOTTLE QD IVGTT
     Route: 041
     Dates: start: 20200303, end: 20200304
  2. SOLU-MEDROL [Suspect]
     Active Substance: METHYLPREDNISOLONE SODIUM SUCCINATE
     Indication: PNEUMONIA
     Dosage: ONE BOTTLE BID IVGTT
     Route: 041
     Dates: start: 20200304, end: 20200305
  3. TIENAM [Suspect]
     Active Substance: CILASTATIN SODIUM\IMIPENEM
     Indication: PNEUMONIA
     Dosage: 0.5G/ALSO REPORTED AS ONE BOTTLE, Q8H/TID, INTRAVENOUS DROPS
     Route: 041
     Dates: start: 20200303, end: 20200304
  4. TIENAM [Suspect]
     Active Substance: CILASTATIN SODIUM\IMIPENEM
     Indication: ANTI-INFECTIVE THERAPY
  5. AVELOX [Suspect]
     Active Substance: MOXIFLOXACIN HYDROCHLORIDE
     Indication: ANTI-INFECTIVE THERAPY
  6. SOLU-MEDROL [Suspect]
     Active Substance: METHYLPREDNISOLONE SODIUM SUCCINATE
     Indication: ANTI-INFECTIVE THERAPY

REACTIONS (3)
  - Mental disorder [Recovering/Resolving]
  - Abnormal behaviour [Recovering/Resolving]
  - Aggression [Unknown]

NARRATIVE: CASE EVENT DATE: 20200304
